FAERS Safety Report 9576527 (Version 1)
Quarter: 2013Q4

REPORT INFORMATION
  Report Type: Spontaneous
  Country: US (occurrence: US)
  Receive Date: 20131001
  Receipt Date: 20131001
  Transmission Date: 20140711
  Serious: No
  Sender: FDA-Public Use
  Company Number: US-AMGEN-USASP2013003561

PATIENT
  Age: 46 Year
  Sex: Female
  Weight: 80.73 kg

DRUGS (2)
  1. ENBREL [Suspect]
     Indication: RHEUMATOID ARTHRITIS
     Dosage: 50 MG, QWK
     Route: 058
     Dates: start: 20050101, end: 20130105
  2. METHOTREXATE [Concomitant]
     Dosage: UNK

REACTIONS (5)
  - Diarrhoea [Recovered/Resolved]
  - Condition aggravated [Unknown]
  - Drug effect incomplete [Unknown]
  - Arthralgia [Unknown]
  - Joint swelling [Unknown]
